FAERS Safety Report 23696798 (Version 2)
Quarter: 2024Q2

REPORT INFORMATION
  Report Type: Spontaneous
  Country: US (occurrence: US)
  Receive Date: 20240402
  Receipt Date: 20240426
  Transmission Date: 20240716
  Serious: Yes (Other)
  Sender: FDA-Public Use
  Company Number: US-BAYER-2024A045489

PATIENT
  Age: 70 Year
  Sex: Male
  Weight: 102.04 kg

DRUGS (19)
  1. KERENDIA [Suspect]
     Active Substance: FINERENONE
     Dosage: 10 MG, QD
     Route: 048
     Dates: start: 20240311
  2. ASPIRIN [Concomitant]
     Active Substance: ASPIRIN
     Dosage: 81 MG, QD
     Route: 048
     Dates: start: 20230901
  3. ATORVASTATIN [Concomitant]
     Active Substance: ATORVASTATIN
     Dosage: 40 MG, QD
     Route: 048
     Dates: start: 20240328
  4. CLONIDINE [Concomitant]
     Active Substance: CLONIDINE
     Dosage: .2 MG
     Route: 048
     Dates: start: 20240314
  5. CLOPIDOGREL [Concomitant]
     Active Substance: CLOPIDOGREL BISULFATE
     Dosage: 75 MG
     Dates: start: 20240316
  6. FAMOTIDINE [Concomitant]
     Active Substance: FAMOTIDINE
     Dosage: 20 MG
     Dates: start: 20240316
  7. HYDRALAZINE [Concomitant]
     Active Substance: HYDRALAZINE HYDROCHLORIDE
     Dosage: 25 MG, QD
     Route: 048
     Dates: start: 20240328
  8. LISINOPRIL [Concomitant]
     Active Substance: LISINOPRIL
     Dosage: 20 MG, QD
     Route: 048
     Dates: start: 20240208
  9. HYDROCHLOROTHIAZIDE [Concomitant]
     Active Substance: HYDROCHLOROTHIAZIDE
     Dosage: 25 MG, QD
     Route: 048
     Dates: start: 20240208
  10. LOSARTAN [Concomitant]
     Active Substance: LOSARTAN
     Dosage: 50 MG, QD
     Route: 048
     Dates: start: 20240328
  11. MELOXICAM [Concomitant]
     Active Substance: MELOXICAM
     Dosage: 15 MG, QD
     Route: 048
     Dates: start: 20240203
  12. METFORMIN [Concomitant]
     Active Substance: METFORMIN HYDROCHLORIDE
     Dosage: 500 MG
     Dates: start: 20231031
  13. OMEPRAZOLE [Concomitant]
     Active Substance: OMEPRAZOLE
     Dosage: 40 MG, QD
     Dates: start: 20240311
  14. DELICA [Concomitant]
     Dosage: UNK
     Dates: start: 20211021
  15. SOLIQUA 100/33 [Concomitant]
     Active Substance: INSULIN GLARGINE\LIXISENATIDE
  16. RECOMBINANT COVID 19 VACCINE (ADENOVIRUS TYPE 5 VECTOR) [Concomitant]
     Dosage: .3 ML
     Dates: start: 20220519
  17. RECOMBINANT COVID 19 VACCINE (ADENOVIRUS TYPE 5 VECTOR) [Concomitant]
     Dosage: .3 ML
     Dates: start: 20211130
  18. RECOMBINANT COVID 19 VACCINE (ADENOVIRUS TYPE 5 VECTOR) [Concomitant]
     Dosage: .3 ML
     Dates: start: 20210317
  19. RECOMBINANT COVID 19 VACCINE (ADENOVIRUS TYPE 5 VECTOR) [Concomitant]
     Dosage: 0.3 ML
     Dates: start: 20210222

REACTIONS (1)
  - Blood pressure increased [None]
